FAERS Safety Report 23432512 (Version 1)
Quarter: 2024Q1

REPORT INFORMATION
  Report Type: Spontaneous
  Country: CN (occurrence: CN)
  Receive Date: 20240123
  Receipt Date: 20240123
  Transmission Date: 20240410
  Serious: Yes (Other)
  Sender: FDA-Public Use
  Company Number: None

PATIENT
  Age: 34 Year
  Sex: Female
  Weight: 64 kg

DRUGS (5)
  1. CYCLOPHOSPHAMIDE [Suspect]
     Active Substance: CYCLOPHOSPHAMIDE
     Indication: Breast cancer female
     Dosage: 1 G, ONE TIME IN ONE DAY, D1, DILUTED WITH 50 ML OF 0.9 % SOLVENT SODIUM CHLORIDE
     Route: 041
     Dates: start: 20231222, end: 20231222
  2. SODIUM CHLORIDE [Suspect]
     Active Substance: SODIUM CHLORIDE
     Indication: Medication dilution
     Dosage: 100 ML, ONE TIME IN ONE DAY, D1, USED TO DILUTE 130 MG OF EPIRUBICIN HYDROCHLORIDE AND 50 ML OF SOLV
     Route: 041
     Dates: start: 20231222, end: 20231222
  3. SODIUM CHLORIDE [Suspect]
     Active Substance: SODIUM CHLORIDE
     Dosage: 50 ML, ONE TIME IN ONE DAY, D1, USED TO DILUTE 1 G OF CYCLOPHOSPHAMIDE, SOLVENT
     Route: 041
     Dates: start: 20231222, end: 20231222
  4. WATER FOR INJECTION [Suspect]
     Active Substance: WATER
     Indication: Medication dilution
     Dosage: 50 ML, ONE TIME IN ONE DAY, D1, USED TO DILUTE 130 MG OF EPIRUBICIN HYDROCHLORIDE AND 100 ML OF 0.9
     Route: 041
     Dates: start: 20231222, end: 20231222
  5. EPIRUBICIN HYDROCHLORIDE [Suspect]
     Active Substance: EPIRUBICIN HYDROCHLORIDE
     Indication: Breast cancer female
     Dosage: 130 MG, ONE TIME IN ONE DAY, D1, DILUTED WITH 100 ML OF 0.9 % SODIUM CHLORIDE AND 50 ML OF SOLVENT S
     Route: 041
     Dates: start: 20231222, end: 20231222

REACTIONS (1)
  - Liver injury [Recovered/Resolved]

NARRATIVE: CASE EVENT DATE: 20240103
